FAERS Safety Report 9539287 (Version 1)
Quarter: 2013Q2

REPORT INFORMATION
  Report Type: Spontaneous
  Country: US (occurrence: None)
  Receive Date: 20130507
  Receipt Date: 20130507
  Transmission Date: 20140414
  Serious: No
  Sender: FDA-Public Use
  Company Number: PHEH2012US025038

PATIENT
  Age: 61 Year
  Sex: Male

DRUGS (3)
  1. AFINITOR (RAD) UNKNOWN [Suspect]
     Route: 048
  2. ANTIBIOTICS (NO INGREDIENTS/SUBSTANCES) [Concomitant]
  3. STEROIDS NOS (NO INGREDIENTS/SUBSTANCES) [Concomitant]

REACTIONS (1)
  - Rash [None]
